FAERS Safety Report 19000462 (Version 1)
Quarter: 2021Q1

REPORT INFORMATION
  Report Type: Spontaneous
  Country: CN (occurrence: CN)
  Receive Date: 20210312
  Receipt Date: 20210312
  Transmission Date: 20210420
  Serious: Yes (Other)
  Sender: FDA-Public Use
  Company Number: CN-TERSERA THERAPEUTICS LLC-2021TRS001082

PATIENT

DRUGS (2)
  1. GOSERELIN [Suspect]
     Active Substance: GOSERELIN
     Indication: PROSTATE CANCER METASTATIC
  2. GOSERELIN [Suspect]
     Active Substance: GOSERELIN
     Indication: CHEMOTHERAPY
     Dosage: 3.6 MILLIGRAM, QD
     Route: 058
     Dates: start: 20210127, end: 20210127

REACTIONS (1)
  - Myelosuppression [Recovered/Resolved]

NARRATIVE: CASE EVENT DATE: 20210127
